FAERS Safety Report 12904234 (Version 2)
Quarter: 2017Q3

REPORT INFORMATION
  Report Type: Spontaneous
  Country: TR (occurrence: TR)
  Receive Date: 20161102
  Receipt Date: 20170907
  Transmission Date: 20171127
  Serious: Yes (Other)
  Sender: FDA-Public Use
  Company Number: TR-JNJFOC-20161024944

PATIENT

DRUGS (1)
  1. INFLIXIMAB, RECOMBINANT [Suspect]
     Active Substance: INFLIXIMAB
     Indication: JUVENILE IDIOPATHIC ARTHRITIS
     Route: 042

REACTIONS (7)
  - Off label use [Unknown]
  - Neuralgia [Unknown]
  - Drug ineffective for unapproved indication [Unknown]
  - Osteoporosis [Unknown]
  - Amyloidosis [Unknown]
  - Body height below normal [Unknown]
  - Glaucoma [Unknown]
